FAERS Safety Report 6203201-5 (Version None)
Quarter: 2009Q2

REPORT INFORMATION
  Report Type: 
  Country: None (occurrence: None)
  Receive Date: 20090521
  Receipt Date: 20090506
  Transmission Date: 20091009
  Serious: Yes (Hospitalization)
  Sender: FDA-Public Use
  Company Number: DSM-2009-00652

PATIENT
  Age: 59 Year
  Sex: Male

DRUGS (6)
  1. MESAR (OLMESARTAN MEDOXOMIL) (TABLET) (OLMESARTAN MEDOXOMIL) [Suspect]
     Indication: HYPERTENSION
     Dosage: 40 MG, ORAL
     Route: 048
     Dates: start: 20070108
  2. CARDACE (RAMIPRIL) (RAMIPRIL) [Concomitant]
  3. BETALOCK ZOR (METOPROLOL) (METOPROLOL) [Concomitant]
  4. CRESTOR [Concomitant]
  5. THROMBO ASS (ACETYLSALICYLIC ACID) (ACETYLSALICYLIC ACID) [Concomitant]
  6. PLAVIX [Concomitant]

REACTIONS (2)
  - RENAL CANCER [None]
  - RENAL FAILURE [None]
